FAERS Safety Report 10996540 (Version 1)
Quarter: 2015Q2

REPORT INFORMATION
  Report Type: Spontaneous
  Country: US (occurrence: None)
  Receive Date: 20150407
  Receipt Date: 20150407
  Transmission Date: 20150821
  Serious: No
  Sender: FDA-Public Use
  Company Number: None

PATIENT
  Age: 77 Year
  Sex: Female
  Weight: 53.07 kg

DRUGS (7)
  1. TYLENOL [Concomitant]
     Active Substance: ACETAMINOPHEN
  2. IBRANCE [Suspect]
     Active Substance: PALBOCICLIB
     Indication: BREAST CANCER
     Dosage: 21 CAPSULE 1 DAILY MOUTH
     Route: 048
     Dates: start: 20150214, end: 20150306
  3. LETROZOLE. [Concomitant]
     Active Substance: LETROZOLE
  4. CALCIUM [Concomitant]
     Active Substance: CALCIUM
  5. PEPCID AC [Concomitant]
     Active Substance: FAMOTIDINE
  6. SIMVASTATIN. [Concomitant]
     Active Substance: SIMVASTATIN
  7. VITAMIN D3 [Concomitant]
     Active Substance: CHOLECALCIFEROL

REACTIONS (7)
  - Fatigue [None]
  - Alopecia [None]
  - Dizziness [None]
  - Pain [None]
  - Headache [None]
  - Chills [None]
  - Full blood count decreased [None]

NARRATIVE: CASE EVENT DATE: 20150227
